FAERS Safety Report 7148432-5 (Version None)
Quarter: 2010Q4

REPORT INFORMATION
  Report Type: 
  Country: None (occurrence: None)
  Receive Date: 20101209
  Receipt Date: 20101203
  Transmission Date: 20110411
  Serious: Yes (Other)
  Sender: FDA-Public Use
  Company Number: GB-PFIZER INC-2010164489

PATIENT
  Age: 48 Year
  Sex: Female
  Weight: 64 kg

DRUGS (4)
  1. CHAMPIX [Suspect]
     Indication: SMOKING CESSATION THERAPY
     Dosage: 2 MG, 2X/DAY
     Route: 048
     Dates: start: 20100910, end: 20100920
  2. ERYTHROMYCIN [Concomitant]
     Indication: SKIN DISORDER
     Dosage: 500 MG, UNK
     Route: 048
     Dates: start: 20060101
  3. FEMOSTON CONTI [Concomitant]
     Indication: HORMONE REPLACEMENT THERAPY
     Dosage: UNK
     Route: 048
  4. LEVOTHYROXINE SODIUM [Concomitant]
     Dosage: 100 UG, UNK
     Route: 048
     Dates: start: 20060101

REACTIONS (3)
  - FEELING ABNORMAL [None]
  - PALPITATIONS [None]
  - SOMNOLENCE [None]
